FAERS Safety Report 6180537-8 (Version None)
Quarter: 2009Q2

REPORT INFORMATION
  Report Type: 
  Country: None (occurrence: None)
  Receive Date: 20090506
  Receipt Date: 20090427
  Transmission Date: 20091009
  Serious: Yes (Hospitalization)
  Sender: FDA-Public Use
  Company Number: US-ABBOTT-09P-163-0570111-00

PATIENT
  Sex: Female
  Weight: 62.652 kg

DRUGS (6)
  1. HUMIRA [Suspect]
     Indication: RHEUMATOID ARTHRITIS
     Route: 058
     Dates: start: 20060101
  2. FOLIC ACID [Concomitant]
     Indication: RHEUMATOID ARTHRITIS
  3. METOPROLOL SUCCINATE [Concomitant]
     Indication: HYPERTENSION
  4. METOPROLOL SUCCINATE [Concomitant]
     Indication: ARRHYTHMIA
  5. CALCIUM [Concomitant]
     Indication: RHEUMATOID ARTHRITIS
  6. MULTI-VITAMIN [Concomitant]
     Indication: RHEUMATOID ARTHRITIS

REACTIONS (3)
  - BRONCHITIS [None]
  - CHRONIC OBSTRUCTIVE PULMONARY DISEASE [None]
  - MYOCARDIAL INFARCTION [None]
